FAERS Safety Report 17455640 (Version 1)
Quarter: 2020Q1

REPORT INFORMATION
  Report Type: Spontaneous
  Country: GB (occurrence: GB)
  Receive Date: 20200225
  Receipt Date: 20200225
  Transmission Date: 20200409
  Serious: Yes (Other)
  Sender: FDA-Public Use
  Company Number: GB-SA-2020SA044753

PATIENT
  Age: 75 Year
  Sex: Male

DRUGS (2)
  1. CABAZITAXEL [Suspect]
     Active Substance: CABAZITAXEL
     Indication: PROSTATE CANCER
     Dosage: 54 MG, QCY
     Route: 042
     Dates: start: 20171205, end: 20171205
  2. CABAZITAXEL [Suspect]
     Active Substance: CABAZITAXEL
     Dosage: 54 MG, QCY
     Route: 042
     Dates: start: 20180413, end: 20180413

REACTIONS (5)
  - Malaise [Unknown]
  - Oropharyngeal pain [Recovering/Resolving]
  - Cough [Recovering/Resolving]
  - Upper respiratory tract infection [Recovering/Resolving]
  - Respiratory tract infection [Unknown]

NARRATIVE: CASE EVENT DATE: 20180316
